FAERS Safety Report 25190217 (Version 1)
Quarter: 2025Q2

REPORT INFORMATION
  Report Type: Spontaneous
  Country: FR (occurrence: FR)
  Receive Date: 20250411
  Receipt Date: 20250411
  Transmission Date: 20250716
  Serious: Yes (Other)
  Sender: MYLAN
  Company Number: None

PATIENT
  Age: 77 Year
  Sex: Male
  Weight: 65 kg

DRUGS (12)
  1. VORICONAZOLE [Suspect]
     Active Substance: VORICONAZOLE
     Indication: Bronchopulmonary aspergillosis
     Dosage: 400 MILLIGRAM, BID (12 HOURS)
     Dates: start: 20250204, end: 20250209
  2. VORICONAZOLE [Suspect]
     Active Substance: VORICONAZOLE
     Dosage: 400 MILLIGRAM, BID (12 HOURS)
     Dates: start: 20250204, end: 20250209
  3. VORICONAZOLE [Suspect]
     Active Substance: VORICONAZOLE
     Dosage: 400 MILLIGRAM, BID (12 HOURS)
     Route: 042
     Dates: start: 20250204, end: 20250209
  4. VORICONAZOLE [Suspect]
     Active Substance: VORICONAZOLE
     Dosage: 400 MILLIGRAM, BID (12 HOURS)
     Route: 042
     Dates: start: 20250204, end: 20250209
  5. VORICONAZOLE [Suspect]
     Active Substance: VORICONAZOLE
     Dosage: 200 MILLIGRAM, BID ( 12 HOURS)
     Dates: start: 20250210, end: 20250228
  6. VORICONAZOLE [Suspect]
     Active Substance: VORICONAZOLE
     Dosage: 200 MILLIGRAM, BID ( 12 HOURS)
     Dates: start: 20250210, end: 20250228
  7. VORICONAZOLE [Suspect]
     Active Substance: VORICONAZOLE
     Dosage: 200 MILLIGRAM, BID ( 12 HOURS)
     Route: 048
     Dates: start: 20250210, end: 20250228
  8. VORICONAZOLE [Suspect]
     Active Substance: VORICONAZOLE
     Dosage: 200 MILLIGRAM, BID ( 12 HOURS)
     Route: 048
     Dates: start: 20250210, end: 20250228
  9. AUGMENTIN [Suspect]
     Active Substance: AMOXICILLIN\CLAVULANATE POTASSIUM
     Indication: Oral infection
     Dosage: 1 DOSAGE FORM, Q8H (POWDER FOR ORAL SUSPENSION IN SACHET (AMOXICILLIN/CLAVULANIC ACID RATIO: 8/1)
     Dates: start: 20250219, end: 20250226
  10. AUGMENTIN [Suspect]
     Active Substance: AMOXICILLIN\CLAVULANATE POTASSIUM
     Dosage: 1 DOSAGE FORM, Q8H (POWDER FOR ORAL SUSPENSION IN SACHET (AMOXICILLIN/CLAVULANIC ACID RATIO: 8/1)
     Route: 048
     Dates: start: 20250219, end: 20250226
  11. AUGMENTIN [Suspect]
     Active Substance: AMOXICILLIN\CLAVULANATE POTASSIUM
     Dosage: 1 DOSAGE FORM, Q8H (POWDER FOR ORAL SUSPENSION IN SACHET (AMOXICILLIN/CLAVULANIC ACID RATIO: 8/1)
     Route: 048
     Dates: start: 20250219, end: 20250226
  12. AUGMENTIN [Suspect]
     Active Substance: AMOXICILLIN\CLAVULANATE POTASSIUM
     Dosage: 1 DOSAGE FORM, Q8H (POWDER FOR ORAL SUSPENSION IN SACHET (AMOXICILLIN/CLAVULANIC ACID RATIO: 8/1)
     Dates: start: 20250219, end: 20250226

REACTIONS (2)
  - Hepatic cytolysis [Recovered/Resolved]
  - Cholestasis [Recovering/Resolving]

NARRATIVE: CASE EVENT DATE: 20250227
